FAERS Safety Report 25583576 (Version 2)
Quarter: 2025Q4

REPORT INFORMATION
  Report Type: Spontaneous
  Country: EU (occurrence: None)
  Receive Date: 20250721
  Receipt Date: 20251027
  Transmission Date: 20260117
  Serious: Yes (Hospitalization)
  Sender: CHIESI
  Company Number: EU-CHIESI-2025CHF04877

PATIENT
  Age: 27 Year
  Sex: Female
  Weight: 40 kg

DRUGS (10)
  1. LAMZEDE [Suspect]
     Active Substance: VELMANASE ALFA-TYCV
     Indication: Alpha-mannosidosis
     Dosage: 40 MILLIGRAM, QW
     Dates: start: 202403, end: 20250709
  2. BECLOMETHASONE DIPROPIONATE [Concomitant]
     Active Substance: BECLOMETHASONE DIPROPIONATE
     Indication: Product used for unknown indication
     Dosage: 1 DOSAGE FORM, PRN
  3. SINGULAIR [Concomitant]
     Active Substance: MONTELUKAST SODIUM
     Indication: Product used for unknown indication
     Dosage: 4 MILLIGRAM, QD
  4. SODIUM FEREDETATE [Concomitant]
     Active Substance: SODIUM FEREDETATE
     Indication: Product used for unknown indication
     Dosage: 15 MILLILITER, Q.AM
  5. FOLIC ACID [Concomitant]
     Active Substance: FOLIC ACID
     Indication: Product used for unknown indication
     Dosage: 5 MILLIGRAM, QD
  6. DESOGESTREL [Concomitant]
     Active Substance: DESOGESTREL
     Indication: Product used for unknown indication
     Dosage: 1 DOSAGE FORM, QD
  7. VALIUM [Concomitant]
     Active Substance: DIAZEPAM
     Indication: Seizure
     Dosage: 1 DOSAGE FORM, QD
  8. KEPPRA [Concomitant]
     Active Substance: LEVETIRACETAM
     Indication: Product used for unknown indication
     Dosage: 15 MILLILITER, BID
  9. CLOBAZAM [Concomitant]
     Active Substance: CLOBAZAM
     Indication: Product used for unknown indication
     Dosage: 15 MILLILITER, BID
  10. DIAZEPAM [Concomitant]
     Active Substance: DIAZEPAM
     Indication: Anxiolytic therapy
     Dosage: UNK

REACTIONS (6)
  - Abdominal pain [Recovered/Resolved]
  - Hypersensitivity [Recovered/Resolved]
  - Oedema peripheral [Recovered/Resolved]
  - Oedema peripheral [Recovered/Resolved]
  - Urticaria [Recovered/Resolved]
  - Urticaria [Recovered/Resolved]

NARRATIVE: CASE EVENT DATE: 20250702
